FAERS Safety Report 4919314-1 (Version None)
Quarter: 2006Q1

REPORT INFORMATION
  Report Type: 
  Country: None (occurrence: None)
  Receive Date: 20060216
  Receipt Date: 20060130
  Transmission Date: 20060701
  Serious: No
  Sender: FDA-Public Use
  Company Number: 28483

PATIENT
  Age: 63 Year
  Sex: Male

DRUGS (8)
  1. ALDARA [Suspect]
     Indication: ACTINIC KERATOSIS
     Dosage: 0.5 SACHET, 5 IN 1 WEEK(S), TOPICAL
     Route: 061
     Dates: start: 20051215, end: 20060112
  2. ALDARA [Suspect]
     Indication: BASAL CELL CARCINOMA
     Dosage: 0.5 SACHET, 5 IN 1 WEEK(S), TOPICAL
     Route: 061
     Dates: start: 20051215, end: 20060112
  3. LIPITOR [Concomitant]
  4. HYZAAR [Concomitant]
  5. NEXIUM [Concomitant]
  6. ASPIRIN [Concomitant]
  7. VITAMINS [Concomitant]
  8. MOTRIN [Concomitant]

REACTIONS (18)
  - ANAPHYLACTIC REACTION [None]
  - APPLICATION SITE BLEEDING [None]
  - APPLICATION SITE ERYTHEMA [None]
  - APPLICATION SITE EXFOLIATION [None]
  - APPLICATION SITE IRRITATION [None]
  - APPLICATION SITE OEDEMA [None]
  - APPLICATION SITE PAIN [None]
  - APPLICATION SITE PRURITUS [None]
  - BURNING SENSATION [None]
  - DYSPNOEA [None]
  - HYPERSENSITIVITY [None]
  - HYPERTENSION [None]
  - IMMUNE SYSTEM DISORDER [None]
  - LOCAL SWELLING [None]
  - OXYGEN SATURATION DECREASED [None]
  - RASH [None]
  - SKIN DISORDER [None]
  - URTICARIA [None]
